FAERS Safety Report 5938164-0 (Version None)
Quarter: 2008Q4

REPORT INFORMATION
  Report Type: 
  Country: None (occurrence: None)
  Receive Date: 20081031
  Receipt Date: 20080908
  Transmission Date: 20090506
  Serious: No
  Sender: FDA-Public Use
  Company Number: US-B.I. PHARMACEUTICALS,INC./RIDGEFIELD-2008-BP-15649BP

PATIENT
  Age: 64 Year
  Sex: Male

DRUGS (1)
  1. MICARDIS [Suspect]

REACTIONS (5)
  - ASTHMA [None]
  - EYE DISCHARGE [None]
  - EYE PRURITUS [None]
  - RASH MACULAR [None]
  - WHEEZING [None]
